FAERS Safety Report 8430973-1 (Version None)
Quarter: 2012Q2

REPORT INFORMATION
  Report Type: 
  Country: None (occurrence: None)
  Receive Date: 20120612
  Receipt Date: 20120530
  Transmission Date: 20120825
  Serious: No
  Sender: FDA-Public Use
  Company Number: US-ASTRAZENECA-2012SE35200

PATIENT
  Sex: Male
  Weight: 97.5 kg

DRUGS (3)
  1. METOPROLOL SUCCINATE [Suspect]
     Route: 048
     Dates: start: 20070101
  2. TOPROL-XL [Suspect]
     Route: 048
  3. ACETAMINOPHEN [Concomitant]

REACTIONS (3)
  - PERIPHERAL COLDNESS [None]
  - HEADACHE [None]
  - BLOOD PRESSURE INCREASED [None]
